FAERS Safety Report 4548567-7 (Version None)
Quarter: 2005Q1

REPORT INFORMATION
  Report Type: 
  Country: None (occurrence: None)
  Receive Date: 20050106
  Receipt Date: 20041222
  Transmission Date: 20050727
  Serious: Yes (Other)
  Sender: FDA-Public Use
  Company Number: 200416300BCC

PATIENT
  Age: 32 Year
  Sex: Female
  Weight: 104.3273 kg

DRUGS (3)
  1. ALEVE [Suspect]
     Indication: TOOTHACHE
     Dosage: 220 MG, QD, ORAL
     Route: 048
     Dates: start: 20040101
  2. AMITRIPTYLINE [Concomitant]
  3. ALPRAZOLAM [Concomitant]

REACTIONS (12)
  - ALOPECIA [None]
  - BLINDNESS TRANSIENT [None]
  - DRUG INEFFECTIVE [None]
  - DYSPNOEA [None]
  - GASTROOESOPHAGEAL REFLUX DISEASE [None]
  - HYPERCHLORHYDRIA [None]
  - HYPOAESTHESIA [None]
  - INSOMNIA [None]
  - NAUSEA [None]
  - TACHYCARDIA [None]
  - TREMOR [None]
  - WEIGHT DECREASED [None]
